FAERS Safety Report 17724313 (Version 3)
Quarter: 2020Q4

REPORT INFORMATION
  Report Type: Spontaneous
  Country: US (occurrence: US)
  Receive Date: 20200429
  Receipt Date: 20201223
  Transmission Date: 20210113
  Serious: Yes (Other)
  Sender: FDA-Public Use
  Company Number: US-PURDUE-USA-2020-0152126

PATIENT
  Sex: Female
  Weight: 55.33 kg

DRUGS (6)
  1. OXYCONTIN [Suspect]
     Active Substance: OXYCODONE HYDROCHLORIDE
     Indication: SYNOVIAL CYST
     Dosage: 60 MG, UNK
     Route: 048
     Dates: start: 1999, end: 2002
  2. OXYCODONE HYDROCHLORIDE (SIMILAR TO NDA 22-272) [Suspect]
     Active Substance: OXYCODONE HYDROCHLORIDE
     Indication: NEURALGIA
     Dosage: 15 MG, UNK
     Route: 048
     Dates: start: 2002
  3. MODAFINIL. [Concomitant]
     Active Substance: MODAFINIL
     Indication: CEREBRAL DISORDER
     Dosage: 200 MG, UNK
     Route: 065
     Dates: start: 2002
  4. GABAPENTIN. [Concomitant]
     Active Substance: GABAPENTIN
     Indication: NEURALGIA
     Dosage: 300 MG, UNK
     Route: 065
     Dates: start: 2020
  5. DULOXETINE HYDROCHLORIDE. [Concomitant]
     Active Substance: DULOXETINE HYDROCHLORIDE
     Indication: DEPRESSION
     Dosage: 60 MG, UNK
     Dates: start: 2015
  6. OXYCONTIN [Suspect]
     Active Substance: OXYCODONE HYDROCHLORIDE
     Indication: NEURALGIA

REACTIONS (4)
  - Speech disorder [Unknown]
  - Loss of personal independence in daily activities [Unknown]
  - Drug dependence [Unknown]
  - Bedridden [Unknown]
